FAERS Safety Report 9434015 (Version 3)
Quarter: 2013Q4

REPORT INFORMATION
  Report Type: Spontaneous
  Country: US (occurrence: US)
  Receive Date: 20130801
  Receipt Date: 20131025
  Transmission Date: 20140711
  Serious: Yes (Hospitalization)
  Sender: FDA-Public Use
  Company Number: US-BIOGENIDEC-2013BI069856

PATIENT
  Age: 41 Year
  Sex: Female

DRUGS (2)
  1. AVONEX [Suspect]
     Indication: MULTIPLE SCLEROSIS
     Route: 030
     Dates: start: 20010701, end: 20030101
  2. AVONEX [Suspect]
     Indication: MULTIPLE SCLEROSIS
     Route: 030
     Dates: start: 20130815

REACTIONS (13)
  - Brain neoplasm [Recovered/Resolved]
  - Cerebrovascular accident [Recovered/Resolved]
  - Blood sodium increased [Recovered/Resolved]
  - Brain oedema [Recovered/Resolved]
  - Coma [Recovered/Resolved]
  - Cervix carcinoma [Recovered/Resolved]
  - Multiple sclerosis relapse [Recovered/Resolved]
  - Liver disorder [Recovered/Resolved]
  - Thyroid disorder [Not Recovered/Not Resolved]
  - Multiple sclerosis [Not Recovered/Not Resolved]
  - Weight increased [Not Recovered/Not Resolved]
  - Memory impairment [Not Recovered/Not Resolved]
  - Influenza like illness [Recovered/Resolved]
